FAERS Safety Report 13475722 (Version 1)
Quarter: 2017Q2

REPORT INFORMATION
  Report Type: Spontaneous
  Country: RU (occurrence: RU)
  Receive Date: 20170425
  Receipt Date: 20170425
  Transmission Date: 20170830
  Serious: Yes (Hospitalization)
  Sender: FDA-Public Use
  Company Number: RU-ASTRAZENECA-2017SE41329

PATIENT
  Age: 78 Year
  Sex: Female

DRUGS (7)
  1. CRESTOR [Suspect]
     Active Substance: ROSUVASTATIN CALCIUM
     Indication: HYPOCHOLESTEROLAEMIA
     Dosage: 10.0MG UNKNOWN
     Route: 048
     Dates: start: 2012, end: 20170314
  2. BETALOC ZOK [Concomitant]
     Active Substance: METOPROLOL SUCCINATE
     Dosage: 25.0MG UNKNOWN
     Dates: start: 2001
  3. BETALOC ZOK [Concomitant]
     Active Substance: METOPROLOL SUCCINATE
     Dosage: 12.5MG UNKNOWN
  4. NOLIPREL [Concomitant]
  5. THROMBO ASS [Concomitant]
     Active Substance: ASPIRIN
  6. PLAVIX [Concomitant]
     Active Substance: CLOPIDOGREL BISULFATE
  7. CRESTOR [Suspect]
     Active Substance: ROSUVASTATIN CALCIUM
     Indication: HYPOCHOLESTEROLAEMIA
     Dosage: 20.0MG UNKNOWN
     Route: 048
     Dates: start: 20170314

REACTIONS (1)
  - Vascular stent thrombosis [Unknown]
